FAERS Safety Report 8213682-3 (Version None)
Quarter: 2012Q1

REPORT INFORMATION
  Report Type: 
  Country: None (occurrence: None)
  Receive Date: 20120315
  Receipt Date: 20120314
  Transmission Date: 20120608
  Serious: Yes (Death, Hospitalization)
  Sender: FDA-Public Use
  Company Number: FR-BAXTER-2012BH007667

PATIENT
  Age: 4 Year
  Sex: Female
  Weight: 15 kg

DRUGS (3)
  1. CYCLOPHOSPHAMIDE [Suspect]
     Indication: B-CELL LYMPHOMA
     Route: 042
     Dates: start: 20080503, end: 20080507
  2. ETOPOSIDE [Suspect]
     Indication: B-CELL LYMPHOMA
     Route: 042
     Dates: start: 20080503, end: 20080507
  3. CLOFARABINE [Suspect]
     Indication: B-CELL LYMPHOMA
     Route: 042
     Dates: start: 20080503, end: 20080507

REACTIONS (1)
  - MULTI-ORGAN FAILURE [None]
